FAERS Safety Report 9950036 (Version 1)
Quarter: 2014Q1

REPORT INFORMATION
  Report Type: Report from Study
  Country: US (occurrence: US)
  Receive Date: 20140304
  Receipt Date: 20140304
  Transmission Date: 20141002
  Serious: Yes (Other)
  Sender: FDA-Public Use
  Company Number: US-ABBVIE-13P-163-1067491-00

PATIENT
  Age: 55 Year
  Sex: Female
  Weight: 104.42 kg

DRUGS (19)
  1. HUMIRA [Suspect]
     Indication: CROHN^S DISEASE
     Route: 058
     Dates: start: 20120328, end: 20120328
  2. HUMIRA [Suspect]
     Route: 058
     Dates: start: 20120411, end: 20120411
  3. HUMIRA [Suspect]
     Route: 058
  4. HUMIRA [Suspect]
     Route: 058
     Dates: start: 20130201
  5. PROTONIX [Concomitant]
     Indication: PROPHYLAXIS
  6. LEVOXYL [Concomitant]
     Indication: HYPOTHYROIDISM
  7. CYMBALTA [Concomitant]
     Indication: DEPRESSION
  8. CYMBALTA [Concomitant]
     Indication: ANXIETY
  9. DIOVAN/HCTZ [Concomitant]
     Indication: HYPERTENSION
     Dosage: 320/25MG
  10. VERAPAMIL [Concomitant]
     Indication: HYPERTENSION
  11. MULTIVITAMIN [Concomitant]
     Indication: VITAMIN SUPPLEMENTATION
  12. KDUR [Concomitant]
     Indication: BLOOD POTASSIUM DECREASED
  13. VITAMIN D [Concomitant]
     Indication: VITAMIN SUPPLEMENTATION
  14. LOVASTATIN [Concomitant]
     Indication: BLOOD CHOLESTEROL INCREASED
  15. XANAX [Concomitant]
     Indication: ANXIETY
     Dosage: AS NEEDED
  16. OMEGA 3 FISHOIL [Concomitant]
     Indication: MINERAL SUPPLEMENTATION
  17. CO Q 10 [Concomitant]
     Indication: VITAMIN SUPPLEMENTATION
  18. CO Q 10 [Concomitant]
     Indication: PRODUCT USED FOR UNKNOWN INDICATION
  19. SUPER B COMPLEX WITH VIT C [Concomitant]
     Indication: VITAMIN SUPPLEMENTATION

REACTIONS (3)
  - Abdominal abscess [Recovered/Resolved]
  - Incision site inflammation [Recovered/Resolved]
  - Incision site abscess [Not Recovered/Not Resolved]
